FAERS Safety Report 8374559-6 (Version None)
Quarter: 2012Q2

REPORT INFORMATION
  Report Type: 
  Country: None (occurrence: None)
  Receive Date: 20120521
  Receipt Date: 20120514
  Transmission Date: 20120825
  Serious: No
  Sender: FDA-Public Use
  Company Number: US-ASTRAZENECA-2011SE58600

PATIENT
  Age: 47 Year
  Sex: Male
  Weight: 77.1 kg

DRUGS (2)
  1. LITHIUM CARBONATE [Concomitant]
     Indication: BIPOLAR DISORDER
     Dates: start: 20050101
  2. SEROQUEL XR [Suspect]
     Indication: BIPOLAR DISORDER
     Route: 048
     Dates: start: 20090901

REACTIONS (7)
  - NAUSEA [None]
  - INSOMNIA [None]
  - HEADACHE [None]
  - DIZZINESS [None]
  - VOMITING [None]
  - ADVERSE EVENT [None]
  - INTENTIONAL DRUG MISUSE [None]
